FAERS Safety Report 10173125 (Version 2)
Quarter: 2014Q3

REPORT INFORMATION
  Report Type: Spontaneous
  Country: US (occurrence: US)
  Receive Date: 20140515
  Receipt Date: 20140929
  Transmission Date: 20150326
  Serious: No
  Sender: FDA-Public Use
  Company Number: US-PFIZER INC-2014129864

PATIENT
  Sex: Female

DRUGS (1)
  1. LEVOXYL [Suspect]
     Active Substance: LEVOTHYROXINE SODIUM
     Dosage: UNK
     Dates: start: 201403

REACTIONS (4)
  - Hypothyroidism [Unknown]
  - Emotional disorder [Unknown]
  - Alopecia [Unknown]
  - Insomnia [Unknown]

NARRATIVE: CASE EVENT DATE: 2014
